FAERS Safety Report 4519425-9 (Version None)
Quarter: 2004Q4

REPORT INFORMATION
  Report Type: 
  Country: None (occurrence: None)
  Receive Date: 20041202
  Receipt Date: 20041122
  Transmission Date: 20050328
  Serious: Yes (Congenital Anomaly)
  Sender: FDA-Public Use
  Company Number: 2004043825

PATIENT
  Sex: Female

DRUGS (4)
  1. ATORVASTATIN (ATORVASTATIN) [Suspect]
     Indication: ILL-DEFINED DISORDER
     Dosage: 20 MG (20 MG, 1 IN 1 D), ORAL
     Route: 048
     Dates: start: 20030721, end: 20040116
  2. INSULIN GLARGINE (INSULIN GLARGINE) [Suspect]
     Indication: DIABETES MELLITUS
     Dosage: 20 TO 30 IU (1 IN 1 D), SUBCUTANEOUS
     Route: 058
     Dates: start: 20021201, end: 20040120
  3. METFORMIN HCL [Concomitant]
  4. INSULIN LISPRO (INSULIN LISPRO) [Concomitant]

REACTIONS (7)
  - ABORTION INDUCED [None]
  - CONGENITAL ANOMALY [None]
  - DRUG EXPOSURE DURING PREGNANCY [None]
  - FACIAL DYSMORPHISM [None]
  - MICROCEPHALY [None]
  - NOSE DEFORMITY [None]
  - PREGNANCY [None]
